FAERS Safety Report 11244328 (Version 2)
Quarter: 2015Q4

REPORT INFORMATION
  Report Type: Spontaneous
  Country: US (occurrence: US)
  Receive Date: 20150707
  Receipt Date: 20151005
  Transmission Date: 20160304
  Serious: Yes (Death, Other)
  Sender: FDA-Public Use
  Company Number: US-ASTRAZENECA-2007UW16425

PATIENT
  Age: 722 Month
  Sex: Female
  Weight: 68 kg

DRUGS (16)
  1. PALBOCICLIB [Concomitant]
     Active Substance: PALBOCICLIB
     Indication: BONE CANCER
     Dosage: 1 CAPSULE BY MOUTH ONE TIME DAILY
     Route: 048
     Dates: start: 20150703
  2. BIOTIN [Concomitant]
     Active Substance: BIOTIN
  3. PANTOPRAZOLE [Concomitant]
     Active Substance: PANTOPRAZOLE SODIUM
  4. ARIMIDEX [Suspect]
     Active Substance: ANASTROZOLE
     Route: 048
  5. ZOMETA [Concomitant]
     Active Substance: ZOLEDRONIC ACID
     Route: 042
  6. ASPIRIN. [Concomitant]
     Active Substance: ASPIRIN
  7. CRESTOR [Concomitant]
     Active Substance: ROSUVASTATIN CALCIUM
  8. PALBOCICLIB [Concomitant]
     Active Substance: PALBOCICLIB
     Indication: BREAST NEOPLASM
     Dosage: 1 CAPSULE BY MOUTH ONE TIME DAILY
     Route: 048
     Dates: start: 20150703
  9. AMLODIPINE [Concomitant]
     Active Substance: AMLODIPINE BESYLATE
     Route: 048
  10. ATIVAN [Concomitant]
     Active Substance: LORAZEPAM
     Dosage: 1 TABLET BY MOUTH EVERY 4 HOURS AS NEEDED.
  11. NEXIUM [Suspect]
     Active Substance: ESOMEPRAZOLE MAGNESIUM
     Indication: GASTROOESOPHAGEAL REFLUX DISEASE
     Route: 048
  12. FASLODEX [Suspect]
     Active Substance: FULVESTRANT
     Dosage: 250 ING/5 ML SYRINGE, EVERY TWO WEEKS
     Route: 030
     Dates: start: 201504
  13. LISINOPRIL. [Concomitant]
     Active Substance: LISINOPRIL
     Route: 048
  14. ULTRAM [Concomitant]
     Active Substance: TRAMADOL HYDROCHLORIDE
     Indication: PAIN
     Dosage: 1 TABLET BY MOUTH TWO TIMES A DAY AS NEEDED
  15. FASLODEX [Suspect]
     Active Substance: FULVESTRANT
     Route: 030
     Dates: end: 201508
  16. SONATA [Concomitant]
     Active Substance: ZALEPLON
     Indication: SLEEP DISORDER
     Dosage: 1 CAPSULE BY MOUTH EVERY BEDTIME AS NEEDED

REACTIONS (6)
  - Throat irritation [Unknown]
  - Cough [Unknown]
  - Breast cancer [Unknown]
  - Pain [Unknown]
  - Sleep disorder [Unknown]
  - Hepatic failure [Fatal]

NARRATIVE: CASE EVENT DATE: 200706
